FAERS Safety Report 4618668-3 (Version None)
Quarter: 2005Q1

REPORT INFORMATION
  Report Type: 
  Country: None (occurrence: None)
  Receive Date: 20050324
  Receipt Date: 20050307
  Transmission Date: 20050727
  Serious: Yes (Other)
  Sender: FDA-Public Use
  Company Number: US_0411107992

PATIENT
  Age: 65 Year
  Sex: Female
  Weight: 91 kg

DRUGS (1)
  1. HUMULIN 70/30 [Suspect]
     Indication: DIABETES MELLITUS
     Dosage: 140 U DAY

REACTIONS (1)
  - MYOCARDIAL INFARCTION [None]
